FAERS Safety Report 6436169-7 (Version None)
Quarter: 2009Q4

REPORT INFORMATION
  Report Type: 
  Country: None (occurrence: None)
  Receive Date: 20091111
  Receipt Date: 20091027
  Transmission Date: 20100525
  Serious: Yes (Other)
  Sender: FDA-Public Use
  Company Number: BR-PFIZER INC-2009207949

PATIENT
  Age: 55 Year
  Sex: Female
  Weight: 90 kg

DRUGS (7)
  1. LIPITOR [Suspect]
     Indication: BLOOD CHOLESTEROL INCREASED
     Dosage: 10 MG, 1X/DAY
     Route: 048
     Dates: start: 20080101, end: 20090301
  2. LIPITOR [Suspect]
     Dosage: 5 MG, 1X/DAY
     Route: 048
     Dates: start: 20090301
  3. GINKO BILOBA [Concomitant]
     Dosage: UNK
  4. AAS [Concomitant]
     Dosage: UNK
  5. MODURETIC 5-50 [Concomitant]
     Dosage: 25 MG, UNK
     Dates: start: 19890101
  6. OLCADIL [Concomitant]
     Indication: RELAXATION THERAPY
     Dosage: 1 MG, AS NEEDED
  7. LOPID [Concomitant]

REACTIONS (8)
  - BLOOD CHOLESTEROL INCREASED [None]
  - BLOOD GLUCOSE DECREASED [None]
  - GAMMA-GLUTAMYLTRANSFERASE INCREASED [None]
  - HEPATIC CIRRHOSIS [None]
  - HYPERHIDROSIS [None]
  - OEDEMA PERIPHERAL [None]
  - SWELLING [None]
  - WEIGHT INCREASED [None]
